FAERS Safety Report 5092799-9 (Version None)
Quarter: 2006Q3

REPORT INFORMATION
  Report Type: 
  Country: None (occurrence: None)
  Receive Date: 20060828
  Receipt Date: 20060814
  Transmission Date: 20061208
  Serious: Yes (Hospitalization, Disabling, Other)
  Sender: FDA-Public Use
  Company Number: BEN-2005-008

PATIENT
  Age: 39 Year
  Sex: Female

DRUGS (1)
  1. BENTYL [Suspect]
     Indication: ABDOMINAL PAIN
     Dosage: 40 MG IV
     Route: 042
     Dates: start: 20041001

REACTIONS (11)
  - DIZZINESS [None]
  - INCORRECT ROUTE OF DRUG ADMINISTRATION [None]
  - MIGRAINE [None]
  - MONOPLEGIA [None]
  - NERVE INJURY [None]
  - PAIN IN EXTREMITY [None]
  - SYNCOPE [None]
  - THROMBOSIS [None]
  - TREMOR [None]
  - VEIN DISORDER [None]
  - VISION BLURRED [None]
